FAERS Safety Report 12508825 (Version 1)
Quarter: 2016Q2

REPORT INFORMATION
  Report Type: Spontaneous
  Country: US (occurrence: US)
  Receive Date: 20160629
  Receipt Date: 20160629
  Transmission Date: 20160815
  Serious: No
  Sender: FDA-Public Use
  Company Number: US-ACTELION-A-NJ2016-138363

PATIENT
  Age: 39 Year
  Sex: Female

DRUGS (1)
  1. VELETRI [Suspect]
     Active Substance: EPOPROSTENOL
     Indication: PULMONARY ARTERIAL HYPERTENSION
     Dosage: 90 NG/KG, PER MIN
     Route: 042
     Dates: start: 20100902

REACTIONS (6)
  - Malaise [Unknown]
  - Device infusion issue [Unknown]
  - Pallor [Unknown]
  - Dizziness [Unknown]
  - Fatigue [Unknown]
  - Cough [Unknown]
